FAERS Safety Report 13563919 (Version 2)
Quarter: 2017Q3

REPORT INFORMATION
  Report Type: Spontaneous
  Country: GB (occurrence: GB)
  Receive Date: 20170519
  Receipt Date: 20170811
  Transmission Date: 20171127
  Serious: Yes (Death, Other)
  Sender: FDA-Public Use
  Company Number: GB-PFIZER INC-2017216426

PATIENT
  Age: 5 Year
  Sex: Female
  Weight: 14.6 kg

DRUGS (2)
  1. GENOTROPIN [Suspect]
     Active Substance: SOMATROPIN
     Indication: NOONAN SYNDROME
     Dosage: 0.6 MG, DAILY
     Route: 058
     Dates: start: 201404
  2. GENOTROPIN [Suspect]
     Active Substance: SOMATROPIN
     Indication: BODY HEIGHT BELOW NORMAL

REACTIONS (7)
  - Pyrexia [Unknown]
  - Pleural effusion [Fatal]
  - Streptococcal infection [Fatal]
  - Cardiac arrest [Fatal]
  - Vomiting [Unknown]
  - Malaise [Unknown]
  - Sepsis [Fatal]

NARRATIVE: CASE EVENT DATE: 20170514
